FAERS Safety Report 9431037 (Version 1)
Quarter: 2013Q3

REPORT INFORMATION
  Report Type: Spontaneous
  Country: US (occurrence: US)
  Receive Date: 20130730
  Receipt Date: 20130730
  Transmission Date: 20140515
  Serious: No
  Sender: FDA-Public Use
  Company Number: US-ABBOTT-13P-163-1090395-00

PATIENT
  Age: 53 Year
  Sex: Female

DRUGS (7)
  1. NIASPAN (COATED) [Suspect]
     Indication: BLOOD CHOLESTEROL INCREASED
     Dates: start: 20130501
  2. AMBIEN [Concomitant]
     Indication: INSOMNIA
  3. KLONOPIN [Concomitant]
     Indication: ANXIETY
  4. PROZAC [Concomitant]
     Indication: DEPRESSION
  5. LORTAB [Concomitant]
     Indication: PAIN
  6. FLEXERIL [Concomitant]
     Indication: MUSCLE SPASMS
  7. GABAPENTIN [Concomitant]
     Indication: NEUROPATHY PERIPHERAL

REACTIONS (1)
  - Insomnia [Not Recovered/Not Resolved]
